FAERS Safety Report 9721615 (Version 2)
Quarter: 2013Q4

REPORT INFORMATION
  Report Type: Spontaneous
  Country: US (occurrence: US)
  Receive Date: 20131201
  Receipt Date: 20131201
  Transmission Date: 20140711
  Serious: No
  Sender: FDA-Public Use
  Company Number: US-ABBVIE-13P-163-1141250-00

PATIENT
  Age: 64 Year
  Sex: Male
  Weight: 64.92 kg

DRUGS (6)
  1. ANDROGEL [Suspect]
     Indication: BLOOD TESTOSTERONE DECREASED
     Route: 061
     Dates: start: 2012
  2. OXYCODONE [Concomitant]
     Indication: BACK PAIN
  3. OXYCODONE [Concomitant]
     Indication: OSTEOARTHRITIS
  4. OXYCODONE [Concomitant]
     Indication: POLIOMYELITIS
  5. OXYCODONE [Concomitant]
     Indication: POLIOMYELITIS
  6. UNKNOWN BLOOD PRESSURE MEDICATION [Concomitant]
     Indication: HYPERTENSION

REACTIONS (1)
  - Musculoskeletal pain [Recovering/Resolving]
